FAERS Safety Report 13589701 (Version 1)
Quarter: 2017Q2

REPORT INFORMATION
  Report Type: Spontaneous
  Country: US (occurrence: US)
  Receive Date: 20170527
  Receipt Date: 20170527
  Transmission Date: 20170830
  Serious: Yes (Other)
  Sender: FDA-Public Use
  Company Number: None

PATIENT
  Age: 58 Year
  Sex: Female
  Weight: 60.75 kg

DRUGS (14)
  1. LOSARTAN P [Concomitant]
  2. PREMARINE VAGINAL CREAM [Concomitant]
  3. MINIVELLE PATCH [Concomitant]
  4. BI-PAP [Concomitant]
     Active Substance: DEVICE
  5. N.P. THYROID [Concomitant]
  6. VITAMIN B COMPLEX [Concomitant]
     Active Substance: CYANOCOBALAMIN\DEXPANTHENOL\NIACINAMIDE\PYRIDOXINE HYDROCHLORIDE\RIBOFLAVIN 5^-PHOSPHATE SODIUM\THIAMINE HYDROCHLORIDE\VITAMIN B COMPLEX
  7. ZYRTEC [Concomitant]
     Active Substance: CETIRIZINE HYDROCHLORIDE
  8. ROBOTICS [Concomitant]
  9. CINNAMON. [Concomitant]
     Active Substance: CINNAMON
  10. MYRBETRIQ [Suspect]
     Active Substance: MIRABEGRON
     Indication: INCONTINENCE
     Dosage: ?          QUANTITY:1 TABLET(S);?
     Route: 048
     Dates: start: 20170411, end: 20170519
  11. PROZAC [Concomitant]
     Active Substance: FLUOXETINE HYDROCHLORIDE
  12. NEURONTIN [Concomitant]
     Active Substance: GABAPENTIN
  13. NAPROXEN. [Concomitant]
     Active Substance: NAPROXEN
  14. GINGER. [Concomitant]
     Active Substance: GINGER

REACTIONS (4)
  - Feeling abnormal [None]
  - Vulvovaginal dryness [None]
  - Vulvovaginal discomfort [None]
  - Loss of personal independence in daily activities [None]

NARRATIVE: CASE EVENT DATE: 20170516
